FAERS Safety Report 18042370 (Version 1)
Quarter: 2020Q3

REPORT INFORMATION
  Report Type: Spontaneous
  Country: US (occurrence: US)
  Receive Date: 20200716
  Receipt Date: 20200716
  Transmission Date: 20201103
  Serious: Yes (Hospitalization)
  Sender: FDA-Public Use
  Company Number: None

PATIENT
  Age: 69 Year
  Sex: Female

DRUGS (2)
  1. EZETIMIBE (EZETIMIBE 10MG TAB) [Suspect]
     Active Substance: EZETIMIBE
     Indication: HYPERLIPIDAEMIA
     Dates: end: 20190719
  2. ACARBOSE (ACARBOSE 50MG TAB) [Suspect]
     Active Substance: ACARBOSE
     Indication: DIABETES MELLITUS
     Route: 048
     Dates: end: 20190719

REACTIONS (1)
  - Hepatic cirrhosis [None]

NARRATIVE: CASE EVENT DATE: 20190716
